FAERS Safety Report 6465568-2 (Version None)
Quarter: 2009Q4

REPORT INFORMATION
  Report Type: 
  Country: None (occurrence: None)
  Receive Date: 20091201
  Receipt Date: 20091116
  Transmission Date: 20100525
  Serious: Yes (Other)
  Sender: FDA-Public Use
  Company Number: JP-PFIZER INC-2009304031

PATIENT
  Age: 65 Year
  Sex: Female

DRUGS (6)
  1. LIPITOR [Suspect]
     Dosage: 10 MG, UNK
     Route: 048
     Dates: start: 20071101, end: 20071201
  2. PANALDINE [Suspect]
     Route: 048
  3. AMLODIPINE [Concomitant]
     Route: 048
  4. RENIVACE [Concomitant]
     Route: 048
  5. ASPIRIN [Concomitant]
     Route: 048
  6. OMEPRAL [Concomitant]
     Route: 048

REACTIONS (1)
  - LIVER DISORDER [None]
